FAERS Safety Report 5670611-4 (Version None)
Quarter: 2008Q1

REPORT INFORMATION
  Report Type: 
  Country: None (occurrence: None)
  Receive Date: 20080314
  Receipt Date: 20080314
  Transmission Date: 20080703
  Serious: Yes (Life-Threatening, Hospitalization, Other)
  Sender: FDA-Public Use
  Company Number: None

PATIENT
  Age: 66 Year
  Sex: Female
  Weight: 72.5755 kg

DRUGS (2)
  1. CIPROFLOXACIN HCL [Suspect]
     Indication: DIVERTICULITIS
     Dosage: 1-500MG TAB TWICE DAILY
     Dates: start: 20060330, end: 20060403
  2. METRONIDAZOLE [Suspect]
     Indication: DIVERTICULITIS
     Dosage: 1-250MG TAB THREE DAILY
     Dates: start: 20060330, end: 20060403

REACTIONS (4)
  - AUTOIMMUNE DISORDER [None]
  - HEPATIC CIRRHOSIS [None]
  - HEPATITIS [None]
  - WEIGHT INCREASED [None]
